FAERS Safety Report 8161354-6 (Version None)
Quarter: 2012Q1

REPORT INFORMATION
  Report Type: 
  Country: None (occurrence: None)
  Receive Date: 20120224
  Receipt Date: 20100712
  Transmission Date: 20120608
  Serious: Yes (Hospitalization, Other)
  Sender: FDA-Public Use
  Company Number: US-BAYER-201020997NA

PATIENT
  Age: 28 Year
  Sex: Female
  Weight: 141.82 kg

DRUGS (3)
  1. YAZ [Suspect]
     Indication: MENSTRUAL CYCLE MANAGEMENT
  2. YAZ [Suspect]
     Indication: ORAL CONTRACEPTION
     Route: 048
     Dates: start: 20070401, end: 20070814
  3. YAZ [Suspect]
     Indication: PREMENSTRUAL SYNDROME

REACTIONS (12)
  - THROMBOPHLEBITIS SUPERFICIAL [None]
  - OEDEMA PERIPHERAL [None]
  - CHOLECYSTITIS ACUTE [None]
  - DEPRESSION [None]
  - DYSPNOEA [None]
  - GALLBLADDER CHOLESTEROLOSIS [None]
  - PAIN IN EXTREMITY [None]
  - ABDOMINAL PAIN UPPER [None]
  - PULMONARY EMBOLISM [None]
  - DEEP VEIN THROMBOSIS [None]
  - WEIGHT INCREASED [None]
  - CHOLELITHIASIS [None]
